FAERS Safety Report 24372955 (Version 2)
Quarter: 2024Q4

REPORT INFORMATION
  Report Type: Report from Study
  Country: US (occurrence: US)
  Receive Date: 20240927
  Receipt Date: 20241021
  Transmission Date: 20250115
  Serious: No
  Sender: SUNOVION
  Company Number: US-SUMITOMO PHARMA SWITZERLAND GMBH-2024SPA000660

PATIENT

DRUGS (2)
  1. ORGOVYX [Suspect]
     Active Substance: RELUGOLIX
     Indication: Prostate cancer
     Dosage: 360 MG
     Route: 048
     Dates: start: 20240420, end: 20240420
  2. ORGOVYX [Suspect]
     Active Substance: RELUGOLIX
     Dosage: 120 MG, QD
     Route: 048
     Dates: start: 20240421

REACTIONS (11)
  - Cartilage injury [Unknown]
  - Muscle spasms [Unknown]
  - Hypersomnia [Unknown]
  - Rash pruritic [Unknown]
  - Cough [Unknown]
  - Adverse event [Not Recovered/Not Resolved]
  - Rash macular [Unknown]
  - Hot flush [Unknown]
  - Arthralgia [Unknown]
  - Arthritis [Unknown]
  - Fatigue [Unknown]
